FAERS Safety Report 6198191-8 (Version None)
Quarter: 2009Q2

REPORT INFORMATION
  Report Type: 
  Country: None (occurrence: None)
  Receive Date: 20090521
  Receipt Date: 20090513
  Transmission Date: 20091009
  Serious: Yes (Hospitalization, Other)
  Sender: FDA-Public Use
  Company Number: US-MERCK-0605USA03990

PATIENT
  Age: 71 Year
  Sex: Female
  Weight: 83 kg

DRUGS (7)
  1. FOSAMAX [Suspect]
     Indication: OSTEOPOROSIS
     Route: 048
     Dates: start: 20020301, end: 20060501
  2. FOSAMAX [Suspect]
     Route: 065
  3. FOSAMAX [Suspect]
     Indication: BONE MARROW OEDEMA SYNDROME
     Route: 048
     Dates: start: 20020301, end: 20060501
  4. FOSAMAX [Suspect]
     Route: 065
  5. PRAVACHOL [Concomitant]
     Route: 065
     Dates: start: 20011031
  6. MAXZIDE [Concomitant]
     Route: 065
     Dates: start: 20010317
  7. [THERAPY UNSPECIFIED] [Concomitant]
     Indication: RHEUMATOID ARTHRITIS
     Route: 065
     Dates: start: 20010606

REACTIONS (25)
  - ABSCESS NECK [None]
  - ADVERSE DRUG REACTION [None]
  - CATARACT [None]
  - CELLULITIS [None]
  - CONSTIPATION [None]
  - CORONARY ARTERY DISEASE [None]
  - DERMATITIS ALLERGIC [None]
  - DYSLIPIDAEMIA [None]
  - EAR PAIN [None]
  - FACIAL PAIN [None]
  - FATIGUE [None]
  - GASTROINTESTINAL DISORDER [None]
  - HAEMORRHOIDS [None]
  - HYPERGLYCAEMIA [None]
  - HYPERLIPIDAEMIA [None]
  - MALAISE [None]
  - NEUROPATHY PERIPHERAL [None]
  - OEDEMA PERIPHERAL [None]
  - ORAL DISORDER [None]
  - OSTEOMYELITIS [None]
  - OSTEONECROSIS [None]
  - PAIN IN EXTREMITY [None]
  - RASH [None]
  - RESORPTION BONE INCREASED [None]
  - TOOTHACHE [None]
